FAERS Safety Report 4409664-X (Version None)
Quarter: 2004Q3

REPORT INFORMATION
  Report Type: 
  Country: None (occurrence: None)
  Receive Date: 20040723
  Receipt Date: 20040713
  Transmission Date: 20050211
  Serious: Yes (Other)
  Sender: FDA-Public Use
  Company Number: HQWYE303821JUL04

PATIENT
  Sex: Female

DRUGS (1)
  1. PREMPRO [Suspect]

REACTIONS (3)
  - CEREBROVASCULAR ACCIDENT [None]
  - DEMENTIA [None]
  - MITRAL VALVE PROLAPSE [None]
